FAERS Safety Report 8502397 (Version 3)
Quarter: 2012Q4

REPORT INFORMATION
  Report Type: 
  Country: US (occurrence: US)
  Receive Date: 20120410
  Receipt Date: 20120910
  Transmission Date: 20130627
  Serious: Yes (Hospitalization)
  Sender: FDA-Public Use
  Company Number: US-BAYER-2012-032287

PATIENT
  Age: 33 Year
  Sex: Female
  Weight: 97.51 kg

DRUGS (11)
  1. YAZ [Suspect]
     Dosage: UNK
     Dates: start: 20070805, end: 20080621
  2. YASMIN [Suspect]
     Dosage: 3-0.03mg
     Dates: start: 20030602, end: 20070705
  3. OCELLA [Suspect]
     Dosage: UNK
     Dates: start: 20080721, end: 20090219
  4. KEFLEX [Concomitant]
     Dosage: UNK UNK, QID
     Dates: start: 20090319
  5. PERCOCET [Concomitant]
     Indication: PAIN
     Dosage: 5/325, 1-2 tabs po q4-6h prn; one pill prn
     Route: 048
     Dates: start: 20090319
  6. LEVAQUIN [Concomitant]
     Dosage: 500 mg, QD
     Route: 048
     Dates: start: 20090321
  7. MULTIVITAMINS [Concomitant]
     Dosage: UNK
     Dates: start: 20090321
  8. ALLEGRA [Concomitant]
     Dosage: UNK
     Dates: start: 20090321
  9. PROZAC [Concomitant]
     Indication: ANXIETY
     Dosage: UNK
     Dates: start: 1999
  10. PROZAC [Concomitant]
     Indication: DEPRESSED MOOD
  11. TYLENOL [Concomitant]
     Dosage: UNK
     Dates: start: 20090321

REACTIONS (4)
  - Pulmonary embolism [None]
  - Pain [None]
  - Injury [None]
  - Pain [None]
